FAERS Safety Report 7287934-8 (Version None)
Quarter: 2011Q1

REPORT INFORMATION
  Report Type: 
  Country: None (occurrence: None)
  Receive Date: 20110211
  Receipt Date: 20110202
  Transmission Date: 20110831
  Serious: No
  Sender: FDA-Public Use
  Company Number: FR-JNJFOC-20110106972

PATIENT
  Sex: Male

DRUGS (10)
  1. FENTANYL CITRATE [Suspect]
     Route: 048
  2. LEXOMIL [Suspect]
     Indication: ILL-DEFINED DISORDER
     Route: 065
  3. FORTZAAR [Concomitant]
     Route: 065
  4. DURAGESIC-100 [Suspect]
     Route: 062
  5. FENTANYL CITRATE [Suspect]
     Indication: CANCER PAIN
     Route: 048
  6. AMLODIPINE [Concomitant]
     Route: 048
  7. LEVOTHYROX [Concomitant]
     Route: 065
  8. DURAGESIC-100 [Suspect]
     Indication: CANCER PAIN
     Route: 062
  9. DURAGESIC-100 [Suspect]
     Route: 062
  10. MOVICOL [Concomitant]
     Indication: CONSTIPATION
     Route: 065

REACTIONS (4)
  - INAPPROPRIATE SCHEDULE OF DRUG ADMINISTRATION [None]
  - AGGRESSION [None]
  - SOMNOLENCE [None]
  - DRUG INEFFECTIVE [None]
